FAERS Safety Report 10977684 (Version 1)
Quarter: 2015Q1

REPORT INFORMATION
  Report Type: Spontaneous
  Country: JP (occurrence: None)
  Receive Date: 20150330
  Receipt Date: 20150330
  Transmission Date: 20150721
  Serious: Yes (Life-Threatening)
  Sender: FDA-Public Use
  Company Number: FK201501443

PATIENT
  Age: 21 Year
  Sex: Male

DRUGS (2)
  1. PREDNISOLONE (PREDNISOLONE) [Suspect]
     Active Substance: PREDNISOLONE
     Indication: STEROID THERAPY
     Route: 048
  2. METHYLPREDNISOLONE. [Suspect]
     Active Substance: METHYLPREDNISOLONE
     Indication: OPTIC NEURITIS

REACTIONS (3)
  - Encephalopathy [None]
  - Acute hepatitis C [None]
  - Acute hepatic failure [None]
